FAERS Safety Report 9852105 (Version 2)
Quarter: 2014Q1

REPORT INFORMATION
  Report Type: Spontaneous
  Country: AU (occurrence: AU)
  Receive Date: 20140129
  Receipt Date: 20140317
  Transmission Date: 20141002
  Serious: Yes (Death, Hospitalization, Other)
  Sender: FDA-Public Use
  Company Number: AU-009507513-1401AUS008810

PATIENT
  Age: 35 Year
  Sex: Male

DRUGS (17)
  1. NANDROLONE DECANOATE [Suspect]
  2. TESTOSTERONE 100MG [Suspect]
  3. TESTOSTERONE ENANTHATE [Suspect]
  4. ARSENIC TRISULFIDE [Suspect]
  5. MECASERMIN [Concomitant]
  6. SOMATROPIN [Concomitant]
  7. TAMOXIFEN CITRATE [Concomitant]
  8. GONADOTROPIN, CHORIONIC [Concomitant]
  9. T4 [Concomitant]
  10. CLENBUTEROL [Concomitant]
  11. GNC L-GLUTAMINE [Concomitant]
  12. LEUCINE [Concomitant]
  13. PROTEIN (UNSPECIFIED) [Concomitant]
  14. ASCORBIC ACID [Concomitant]
  15. ZINC (UNSPECIFIED) [Concomitant]
  16. AMILORIDE [Concomitant]
  17. HYDROCHLOROTHIAZIDE [Concomitant]

REACTIONS (15)
  - Multi-organ failure [Fatal]
  - Hepatic failure [Fatal]
  - Renal failure [Fatal]
  - Encephalopathy [Fatal]
  - Bone marrow failure [Fatal]
  - Metal poisoning [Fatal]
  - Product contamination [Fatal]
  - Drug-induced liver injury [Fatal]
  - Testicular atrophy [Unknown]
  - Acne [Unknown]
  - Substance abuse [Unknown]
  - Cardiomyopathy [Unknown]
  - Axonal neuropathy [Unknown]
  - Off label use [Unknown]
  - Drug abuse [Unknown]
